FAERS Safety Report 12076432 (Version 1)
Quarter: 2016Q1

REPORT INFORMATION
  Report Type: Spontaneous
  Country: US (occurrence: US)
  Receive Date: 20160215
  Receipt Date: 20160215
  Transmission Date: 20160526
  Serious: Yes (Hospitalization, Other)
  Sender: FDA-Public Use
  Company Number: US-ACCORD-037760

PATIENT
  Age: 59 Year
  Sex: Female
  Weight: 55.45 kg

DRUGS (1)
  1. ACCORD^S CLONAZEPAM [Suspect]
     Active Substance: CLONAZEPAM
     Indication: RESTLESS LEGS SYNDROME
     Dosage: CLONAZEPAM 1 MG DAILY AND PRN ABOUT 3 MONTHS AGO.
     Route: 048

REACTIONS (4)
  - Device colour issue [Recovered/Resolved]
  - Panic attack [Not Recovered/Not Resolved]
  - Product solubility abnormal [Unknown]
  - Liver disorder [Not Recovered/Not Resolved]
